FAERS Safety Report 10644540 (Version 2)
Quarter: 2014Q4

REPORT INFORMATION
  Report Type: Spontaneous
  Country: IT (occurrence: IT)
  Receive Date: 20141210
  Receipt Date: 20141224
  Transmission Date: 20150529
  Serious: Yes (Disabling)
  Sender: FDA-Public Use
  Company Number: IT-BAUSCH-BL-2014-010022

PATIENT
  Age: 70 Year
  Sex: Female

DRUGS (3)
  1. FLOUROURACIL [Suspect]
     Active Substance: FLUOROURACIL
     Indication: ADENOCARCINOMA OF COLON
     Route: 042
     Dates: start: 20140623, end: 20141106
  2. OXALIPLATIN. [Suspect]
     Active Substance: OXALIPLATIN
     Indication: ADENOCARCINOMA OF COLON
     Route: 042
     Dates: start: 20140623, end: 20141106
  3. DEXAMETHASONE. [Suspect]
     Active Substance: DEXAMETHASONE
     Indication: PROPHYLAXIS
     Route: 042
     Dates: start: 20140623, end: 20141106

REACTIONS (2)
  - Hypertension [Recovered/Resolved with Sequelae]
  - Left ventricular failure [Recovered/Resolved with Sequelae]

NARRATIVE: CASE EVENT DATE: 20141106
